FAERS Safety Report 10565885 (Version 1)
Quarter: 2014Q4

REPORT INFORMATION
  Report Type: Spontaneous
  Country: US (occurrence: None)
  Receive Date: 20141104
  Receipt Date: 20141104
  Transmission Date: 20150529
  Serious: No
  Sender: FDA-Public Use
  Company Number: None

PATIENT
  Age: 20 Year
  Sex: Female

DRUGS (1)
  1. CREST PRO-HEALTH COMPLETE (CLEAN MINT) [Suspect]
     Active Substance: SODIUM FLUORIDE
     Indication: DENTAL DISORDER PROPHYLAXIS
     Dates: start: 20141029, end: 20141101

REACTIONS (6)
  - Oral pain [None]
  - Tongue discolouration [None]
  - Speech disorder [None]
  - Noninfective gingivitis [None]
  - Glossodynia [None]
  - Hypogeusia [None]

NARRATIVE: CASE EVENT DATE: 20141029
